FAERS Safety Report 5707125-9 (Version None)
Quarter: 2008Q2

REPORT INFORMATION
  Report Type: 
  Country: None (occurrence: None)
  Receive Date: 20080416
  Receipt Date: 20080410
  Transmission Date: 20081010
  Serious: Yes (Hospitalization)
  Sender: FDA-Public Use
  Company Number: CO-ROCHE-558170

PATIENT
  Sex: Female
  Weight: 57 kg

DRUGS (4)
  1. BONIVA [Suspect]
     Indication: DRUG USE FOR UNKNOWN INDICATION
     Dosage: DOSAGE REGIMEN REPORTED AS QUATERLY. FORM: SYRINGE.
     Route: 042
     Dates: start: 20080307
  2. BONIVA [Suspect]
     Dosage: DOSAGE REGIMEN REPORTED AS MONTHLY.
     Route: 048
     Dates: start: 20070101, end: 20070101
  3. OMEPRAZOLE [Concomitant]
     Route: 048
  4. NEBILET [Concomitant]
     Indication: HYPERTENSION
     Route: 048

REACTIONS (1)
  - HYPONATRAEMIA [None]
